FAERS Safety Report 4541732-4 (Version None)
Quarter: 2004Q4

REPORT INFORMATION
  Report Type: 
  Country: None (occurrence: None)
  Receive Date: 20041230
  Receipt Date: 20041222
  Transmission Date: 20050328
  Serious: Yes (Hospitalization)
  Sender: FDA-Public Use
  Company Number: US-JNJFOC-20041206659

PATIENT
  Sex: Female

DRUGS (6)
  1. DURAGESIC [Suspect]
     Route: 062
     Dates: start: 20041101, end: 20041218
  2. DURAGESIC [Suspect]
     Route: 062
     Dates: start: 20041101, end: 20041218
  3. VICODIN [Concomitant]
     Route: 049
     Dates: start: 19980101
  4. VICODIN [Concomitant]
     Indication: PAIN
     Route: 049
     Dates: start: 19980101
  5. XANAX [Concomitant]
     Dosage: USUALLY USES 2 TABLETS IN 1 DAY, FOR YEARS, UNSPECIFIED DATE
     Route: 049
  6. FLEXERIL [Concomitant]
     Route: 049
     Dates: start: 19980101

REACTIONS (3)
  - CEREBROVASCULAR ACCIDENT [None]
  - MOBILITY DECREASED [None]
  - TREATMENT NONCOMPLIANCE [None]
